FAERS Safety Report 7171251-0 (Version None)
Quarter: 2010Q4

REPORT INFORMATION
  Report Type: 
  Country: None (occurrence: None)
  Receive Date: 20101217
  Receipt Date: 20101208
  Transmission Date: 20110411
  Serious: Yes (Hospitalization)
  Sender: FDA-Public Use
  Company Number: CN-ASTRAZENECA-2010SE58306

PATIENT
  Age: 70 Year
  Sex: Female

DRUGS (2)
  1. IRESSA [Suspect]
     Indication: NON-SMALL CELL LUNG CANCER
     Route: 048
     Dates: start: 20101206, end: 20101207
  2. UNKNOWN HERBAL MEDICINE [Concomitant]
     Indication: DIABETES MELLITUS
     Route: 048
     Dates: start: 20101001, end: 20101207

REACTIONS (3)
  - DIZZINESS [None]
  - HYPOGLYCAEMIA [None]
  - SOMNOLENCE [None]
